APPROVED DRUG PRODUCT: ATRACURIUM BESYLATE
Active Ingredient: ATRACURIUM BESYLATE
Strength: 10MG/ML
Dosage Form/Route: INJECTABLE;INJECTION
Application: A206096 | Product #001
Applicant: PHARMOBEDIENT CONSULTING LLC
Approved: Jun 22, 2017 | RLD: No | RS: No | Type: DISCN